FAERS Safety Report 11402887 (Version 1)
Quarter: 2015Q3

REPORT INFORMATION
  Report Type: Spontaneous
  Country: US (occurrence: US)
  Receive Date: 20150821
  Receipt Date: 20150821
  Transmission Date: 20151125
  Serious: No
  Sender: FDA-Public Use
  Company Number: US-ROCHE-504106

PATIENT
  Sex: Female

DRUGS (5)
  1. PEGASYS [Suspect]
     Active Substance: PEGINTERFERON ALFA-2A
     Route: 058
  2. PEGASYS [Suspect]
     Active Substance: PEGINTERFERON ALFA-2A
     Indication: CHRONIC HEPATITIS C
     Route: 065
     Dates: start: 20070610, end: 20071128
  3. TELAPREVIR [Suspect]
     Active Substance: TELAPREVIR
     Indication: CHRONIC HEPATITIS C
     Route: 065
     Dates: start: 20121021
  4. COPEGUS [Suspect]
     Active Substance: RIBAVIRIN
     Indication: CHRONIC HEPATITIS C
     Dosage: 400 MG EACH MORNING AND 600 MG EACH EVENING
     Route: 065
     Dates: start: 20070610, end: 20071128
  5. COPEGUS [Suspect]
     Active Substance: RIBAVIRIN
     Route: 048

REACTIONS (9)
  - Injection site rash [Unknown]
  - Rash [Unknown]
  - Hepatitis C [Unknown]
  - Dyspnoea [Unknown]
  - Rash papular [Unknown]
  - Haemoglobin decreased [Unknown]
  - Viral infection [Unknown]
  - Palpitations [Unknown]
  - Hepatic enzyme increased [Unknown]
